FAERS Safety Report 7820231-8 (Version None)
Quarter: 2011Q4

REPORT INFORMATION
  Report Type: 
  Country: None (occurrence: None)
  Receive Date: 20111018
  Receipt Date: 20111004
  Transmission Date: 20120403
  Serious: Yes (Hospitalization)
  Sender: FDA-Public Use
  Company Number: MX-ELI_LILLY_AND_COMPANY-MX201110000792

PATIENT
  Age: 55 Year
  Sex: Female
  Weight: 47.5 kg

DRUGS (9)
  1. AKINETON [Concomitant]
  2. CLONAZEPAM [Concomitant]
  3. FORTEO [Suspect]
     Dosage: 20 UG, EVERY TWO DAYS
  4. NEUROBION                          /00176001/ [Concomitant]
     Dosage: UNK
     Dates: start: 20110928
  5. FORTEO [Suspect]
     Indication: OSTEOPOROSIS
     Dosage: 20 UG, QD
     Route: 058
     Dates: start: 20110911
  6. ASCORBIC ACID [Concomitant]
  7. BIPERIDEN HYDROCHLORIDE TAB [Concomitant]
     Indication: BACK DISORDER
     Dosage: UNK
     Dates: start: 20110928
  8. LYRICA [Concomitant]
     Dosage: UNK
     Dates: end: 20110927
  9. REDOXON [Concomitant]

REACTIONS (11)
  - TREMOR [None]
  - PAIN [None]
  - HEADACHE [None]
  - DIZZINESS [None]
  - INFLUENZA LIKE ILLNESS [None]
  - BONE PAIN [None]
  - SENSATION OF HEAVINESS [None]
  - COUGH [None]
  - TACHYCARDIA [None]
  - SNEEZING [None]
  - MEDICATION ERROR [None]
